FAERS Safety Report 7633904-7 (Version None)
Quarter: 2011Q3

REPORT INFORMATION
  Report Type: 
  Country: None (occurrence: None)
  Receive Date: 20110718
  Receipt Date: 20110701
  Transmission Date: 20111222
  Serious: Yes (Other)
  Sender: FDA-Public Use
  Company Number: THQ2011A03124

PATIENT
  Age: 45 Year
  Sex: Female

DRUGS (2)
  1. PIOGLITAZONE HYDROCHLORIDE/METFORMIN HYDROCHLORIDE [Suspect]
     Indication: DIABETES MELLITUS
     Dosage: (PIOGLITAZONE HYDROCHLORIDE 15 MG/METFORMIN HYDROCHLORIDE 850 MG, 2 IN 1 D) 1)  PER ORAL
     Route: 048
     Dates: start: 20110530, end: 20110601
  2. ANTIHYPERTENSIVES (UNSPECIFIED)(ANTIHYPERTENSIVES) [Concomitant]

REACTIONS (1)
  - DRUG HYPERSENSITIVITY [None]
